FAERS Safety Report 7630500-2 (Version None)
Quarter: 2011Q3

REPORT INFORMATION
  Report Type: 
  Country: None (occurrence: None)
  Receive Date: 20110722
  Receipt Date: 20110715
  Transmission Date: 20111222
  Serious: Yes (Other)
  Sender: FDA-Public Use
  Company Number: TW-PFIZER INC-2011160366

PATIENT
  Age: 30 Year
  Sex: Female

DRUGS (1)
  1. GEODON [Suspect]
     Indication: SCHIZOPHRENIA
     Dosage: UNK
     Route: 048
     Dates: start: 20100101, end: 20110601

REACTIONS (5)
  - MUSCLE TWITCHING [None]
  - MUSCULAR WEAKNESS [None]
  - GAIT DISTURBANCE [None]
  - TREMOR [None]
  - DYSKINESIA [None]
